FAERS Safety Report 25988469 (Version 1)
Quarter: 2025Q4

REPORT INFORMATION
  Report Type: Spontaneous
  Country: EU (occurrence: EU)
  Receive Date: 20251103
  Receipt Date: 20251103
  Transmission Date: 20260117
  Serious: Yes (Death, Hospitalization)
  Sender: DAIICHI
  Company Number: EU-DSJP-DS-2025-173336-PT

PATIENT
  Sex: Female

DRUGS (1)
  1. TRASTUZUMAB DERUXTECAN [Suspect]
     Active Substance: TRASTUZUMAB DERUXTECAN
     Indication: Triple negative breast cancer
     Dosage: 5.4 MG/KG
     Route: 065

REACTIONS (2)
  - Interstitial lung disease [Fatal]
  - Disease progression [Fatal]
